FAERS Safety Report 25103238 (Version 1)
Quarter: 2025Q1

REPORT INFORMATION
  Report Type: Spontaneous
  Country: US (occurrence: US)
  Receive Date: 20250321
  Receipt Date: 20250321
  Transmission Date: 20250409
  Serious: No
  Sender: HIKMA
  Company Number: US-HIKMA PHARMACEUTICALS USA INC.-US-H14001-24-07342

PATIENT
  Age: 86 Year
  Sex: Female
  Weight: 61.224 kg

DRUGS (3)
  1. FLUTICASONE PROPIONATE [Suspect]
     Active Substance: FLUTICASONE PROPIONATE
     Indication: Sinus pain
     Dosage: 2 DOSAGE FORM, QD
     Route: 045
     Dates: start: 20240728
  2. TYLENOL [Concomitant]
     Active Substance: ACETAMINOPHEN
     Indication: Product used for unknown indication
     Route: 065
  3. ZETIA [Concomitant]
     Active Substance: EZETIMIBE
     Indication: Product used for unknown indication
     Route: 065

REACTIONS (5)
  - Somnolence [Unknown]
  - Malaise [Unknown]
  - Fatigue [Unknown]
  - Sinus headache [Unknown]
  - Off label use [Unknown]

NARRATIVE: CASE EVENT DATE: 20240728
